FAERS Safety Report 25762728 (Version 1)
Quarter: 2025Q3

REPORT INFORMATION
  Report Type: Spontaneous
  Country: JP (occurrence: JP)
  Receive Date: 20250904
  Receipt Date: 20250904
  Transmission Date: 20251021
  Serious: Yes (Hospitalization, Other)
  Sender: ELI LILLY AND COMPANY
  Company Number: JP-ELI_LILLY_AND_COMPANY-JP202506003015

PATIENT
  Age: 74 Year
  Sex: Female
  Weight: 44 kg

DRUGS (2)
  1. VERZENIO [Suspect]
     Active Substance: ABEMACICLIB
     Indication: Breast cancer recurrent
     Dosage: 150 MG, BID
     Route: 048
     Dates: start: 20250227, end: 20250427
  2. FEMARA [Suspect]
     Active Substance: LETROZOLE
     Indication: Breast cancer recurrent
     Dosage: 2.5 MG, DAILY
     Route: 048
     Dates: start: 20250206, end: 20250426

REACTIONS (6)
  - Disseminated intravascular coagulation [Recovered/Resolved]
  - Interstitial lung disease [Recovering/Resolving]
  - Generalised oedema [Unknown]
  - Urine output decreased [Unknown]
  - Pleural effusion [Unknown]
  - Drug eruption [Unknown]

NARRATIVE: CASE EVENT DATE: 20250425
